FAERS Safety Report 18127811 (Version 2)
Quarter: 2020Q3

REPORT INFORMATION
  Report Type: Report from Study
  Country: IT (occurrence: IT)
  Receive Date: 20200810
  Receipt Date: 20200821
  Transmission Date: 20201103
  Serious: Yes (Other)
  Sender: FDA-Public Use
  Company Number: IT-TEVA-2020-IT-1811110

PATIENT
  Age: 67 Year
  Sex: Female

DRUGS (2)
  1. PACLITAXEL. [Suspect]
     Active Substance: PACLITAXEL
     Indication: OVARIAN CANCER
     Dosage: 200MG
     Route: 042
     Dates: start: 20190912
  2. CARBOPLATIN. [Concomitant]
     Active Substance: CARBOPLATIN
     Dosage: 500MG
     Route: 042

REACTIONS (5)
  - Skin oedema [Recovered/Resolved]
  - Loss of consciousness [Recovered/Resolved]
  - Laryngeal oedema [Recovered/Resolved]
  - Chest pain [Recovered/Resolved]
  - Cyanosis [Recovered/Resolved]

NARRATIVE: CASE EVENT DATE: 20190912
